FAERS Safety Report 7987600-7 (Version None)
Quarter: 2011Q4

REPORT INFORMATION
  Report Type: 
  Country: None (occurrence: None)
  Receive Date: 20111216
  Receipt Date: 20110419
  Transmission Date: 20120403
  Serious: No
  Sender: FDA-Public Use
  Company Number: US-BRISTOL-MYERS SQUIBB COMPANY-15689763

PATIENT
  Age: 56 Year
  Sex: Male

DRUGS (6)
  1. GEODON [Concomitant]
  2. SEROQUEL [Concomitant]
  3. DEPAKOTE ER [Concomitant]
  4. LATUDA [Suspect]
     Indication: DEPRESSION
     Dosage: STRENGTH 40 MG; 10MG QD 07-FEB-2011-15-FEB-2011; 20 MG QD 16-FEB-2011-17-FEB-2011
     Route: 048
  5. LITHIUM CARBONATE [Concomitant]
  6. ABILIFY [Suspect]

REACTIONS (1)
  - ANXIETY [None]
